FAERS Safety Report 20583495 (Version 1)
Quarter: 2022Q1

REPORT INFORMATION
  Report Type: Spontaneous
  Country: IT (occurrence: IT)
  Receive Date: 20220311
  Receipt Date: 20220311
  Transmission Date: 20220423
  Serious: Yes (Hospitalization)
  Sender: FDA-Public Use
  Company Number: IT-JNJFOC-20220313202

PATIENT
  Age: 66 Year
  Sex: Male

DRUGS (3)
  1. DARZALEX [Suspect]
     Active Substance: DARATUMUMAB
     Indication: Monoclonal gammopathy
     Route: 042
  2. DEXAMETHASONE [Suspect]
     Active Substance: DEXAMETHASONE
     Indication: Monoclonal gammopathy
     Route: 065
  3. LENALIDOMIDE [Suspect]
     Active Substance: LENALIDOMIDE
     Indication: Monoclonal gammopathy
     Route: 065

REACTIONS (6)
  - Acinetobacter infection [Recovered/Resolved]
  - Pleural effusion [Unknown]
  - Aspergillus test positive [Recovered/Resolved]
  - Cytomegalovirus test positive [Recovered/Resolved]
  - Off label use [Unknown]
  - Product use in unapproved indication [Unknown]
